FAERS Safety Report 9354111 (Version 1)
Quarter: 2013Q2

REPORT INFORMATION
  Report Type: Spontaneous
  Country: US (occurrence: US)
  Receive Date: 20130618
  Receipt Date: 20130618
  Transmission Date: 20140414
  Serious: Yes (Other)
  Sender: FDA-Public Use
  Company Number: US-AMGEN-USASP2013042548

PATIENT
  Age: 7 Year
  Sex: Female
  Weight: 21.77 kg

DRUGS (3)
  1. ENBREL [Suspect]
     Indication: PRODUCT USED FOR UNKNOWN INDICATION
     Dosage: 10 MG, 2 TIMES/WK
     Route: 058
  2. IBUPROFEN                          /00109205/ [Concomitant]
     Dosage: 100 MG JR CHW, UNK
  3. MULTIVITAMINS, PLAIN [Concomitant]
     Dosage: CHW CHILDS, UNK

REACTIONS (1)
  - Kidney infection [Unknown]
